FAERS Safety Report 9018376 (Version 1)
Quarter: 2013Q1

REPORT INFORMATION
  Report Type: Spontaneous
  Country: US (occurrence: None)
  Receive Date: 20130111
  Receipt Date: 20130111
  Transmission Date: 20140127
  Serious: Yes (Death)
  Sender: FDA-Public Use
  Company Number: None

PATIENT
  Age: 67 Year
  Sex: Female

DRUGS (12)
  1. REVLIMID 10MG CELGENE [Suspect]
     Indication: PLASMA CELL MYELOMA
     Dosage: 10MG DAILY ORALLY
     Route: 048
     Dates: start: 201110, end: 201202
  2. LISINOPRIL [Concomitant]
  3. ZOCOR [Concomitant]
  4. ZOLOFT [Concomitant]
  5. NEURONTIN [Concomitant]
  6. COREG [Concomitant]
  7. ZOVIRAX [Concomitant]
  8. LASIX [Concomitant]
  9. PREDNISONE [Concomitant]
  10. IMDUR [Concomitant]
  11. REMERON [Concomitant]
  12. COLACE [Concomitant]

REACTIONS (1)
  - Plasma cell myeloma [None]
